FAERS Safety Report 7392564-3 (Version None)
Quarter: 2011Q2

REPORT INFORMATION
  Report Type: 
  Country: None (occurrence: None)
  Receive Date: 20110404
  Receipt Date: 20110325
  Transmission Date: 20111010
  Serious: Yes (Hospitalization)
  Sender: FDA-Public Use
  Company Number: FR-MPIJNJ-2011-00808

PATIENT

DRUGS (4)
  1. VELCADE [Suspect]
     Dosage: 2.4 MG, CYCLIC
     Route: 042
     Dates: start: 20110114, end: 20110127
  2. LACTULOSE [Concomitant]
     Indication: HAEMOLYSIS
     Dosage: UNK
  3. DEXAMETHASONE [Suspect]
     Dosage: 20 MG, UNK
     Route: 048
     Dates: start: 20110116, end: 20110204
  4. DELURSAN [Concomitant]
     Indication: HAEMOLYSIS
     Dosage: UNK

REACTIONS (2)
  - EPILEPSY [None]
  - HYPOKALAEMIA [None]
